FAERS Safety Report 10090249 (Version 1)
Quarter: 2014Q2

REPORT INFORMATION
  Report Type: Spontaneous
  Country: US (occurrence: None)
  Receive Date: 20140411
  Receipt Date: 20140411
  Transmission Date: 20141212
  Serious: Yes (Other)
  Sender: FDA-Public Use
  Company Number: 2014US003039

PATIENT
  Age: 35 Year
  Sex: Female

DRUGS (4)
  1. ICLUSIG (PONATINIB) TABLET, 45MG [Suspect]
     Indication: CHRONIC MYELOID LEUKAEMIA
     Route: 048
     Dates: start: 20140116
  2. CYMBALTA [Concomitant]
  3. SYNTHROID (LEVOTHYROXINE SODIUM) [Concomitant]
  4. CELEXA (CITALOPRAM HYDROBROMIDE) [Concomitant]

REACTIONS (2)
  - Skin exfoliation [None]
  - Rash generalised [None]
